FAERS Safety Report 23048452 (Version 1)
Quarter: 2023Q4

REPORT INFORMATION
  Report Type: Spontaneous
  Country: US (occurrence: US)
  Receive Date: 20231010
  Receipt Date: 20231010
  Transmission Date: 20240110
  Serious: Yes (Death, Other)
  Sender: FDA-Public Use
  Company Number: US-BRISTOL-MYERS SQUIBB COMPANY-2023-143310

PATIENT
  Age: 73 Year
  Sex: Male

DRUGS (1)
  1. POMALYST [Suspect]
     Active Substance: POMALIDOMIDE
     Indication: Plasma cell myeloma
     Dosage: 28 DAY CYCLES (21 DAYS ON, 7 DAYS OFF)
     Route: 048
     Dates: start: 20230712, end: 20230905

REACTIONS (2)
  - Death [Fatal]
  - Inappropriate schedule of product administration [Unknown]
